FAERS Safety Report 23386356 (Version 1)
Quarter: 2024Q1

REPORT INFORMATION
  Report Type: Spontaneous
  Country: CA (occurrence: CA)
  Receive Date: 20240110
  Receipt Date: 20240110
  Transmission Date: 20240409
  Serious: Yes (Other)
  Sender: FDA-Public Use
  Company Number: CA-009507513-2401CAN000856

PATIENT
  Age: 3 Decade
  Sex: Female

DRUGS (5)
  1. INVANZ [Suspect]
     Active Substance: ERTAPENEM SODIUM
     Indication: Citrobacter infection
     Dosage: UNK
     Route: 042
  2. AMOXICILLIN\CLAVULANIC ACID [Suspect]
     Active Substance: AMOXICILLIN\CLAVULANIC ACID
     Indication: Citrobacter infection
     Dosage: UNK
     Route: 048
  3. CLARITHROMYCIN [Suspect]
     Active Substance: CLARITHROMYCIN
     Indication: Citrobacter infection
     Dosage: UNK
     Route: 048
  4. CLINDAMYCIN [Suspect]
     Active Substance: CLINDAMYCIN
     Indication: Citrobacter infection
     Dosage: UNK
     Route: 048
  5. CIPROFLOXACIN [Suspect]
     Active Substance: CIPROFLOXACIN
     Indication: Citrobacter infection
     Dosage: UNK
     Route: 048

REACTIONS (1)
  - Therapy partial responder [Unknown]
